FAERS Safety Report 20794441 (Version 2)
Quarter: 2023Q2

REPORT INFORMATION
  Report Type: Spontaneous
  Country: US (occurrence: US)
  Receive Date: 20220506
  Receipt Date: 20230531
  Transmission Date: 20230722
  Serious: No
  Sender: FDA-Public Use
  Company Number: US-UCBSA-2021051493

PATIENT
  Sex: Female

DRUGS (1)
  1. CIMZIA [Suspect]
     Active Substance: CERTOLIZUMAB PEGOL
     Indication: Psoriatic arthropathy
     Dosage: 200 MILLIGRAM, EV 2 WEEKS(QOW)
     Route: 058
     Dates: start: 20201124

REACTIONS (7)
  - Hypersensitivity [Unknown]
  - Sneezing [Unknown]
  - Cough [Unknown]
  - Oropharyngeal pain [Unknown]
  - Psoriatic arthropathy [Unknown]
  - Skin plaque [Unknown]
  - Dyspnoea [Unknown]
